FAERS Safety Report 23177352 (Version 1)
Quarter: 2023Q4

REPORT INFORMATION
  Report Type: Report from Study
  Country: US (occurrence: US)
  Receive Date: 20231113
  Receipt Date: 20231113
  Transmission Date: 20240109
  Serious: Yes (Hospitalization)
  Sender: FDA-Public Use
  Company Number: US-ARGENX-2023-ARGX-US000455AA

PATIENT

DRUGS (3)
  1. VYVGART [Suspect]
     Active Substance: EFGARTIGIMOD ALFA-FCAB
     Indication: Product used for unknown indication
     Dosage: UNK
     Route: 042
     Dates: start: 20230102
  2. PYRIDOSTIGMINE [Concomitant]
     Active Substance: PYRIDOSTIGMINE
     Indication: Product used for unknown indication
     Dosage: UNK
  3. PREDNISONE [Concomitant]
     Active Substance: PREDNISONE
     Indication: Product used for unknown indication
     Dosage: UNK

REACTIONS (11)
  - Myocardial infarction [Unknown]
  - Hypersomnia [Unknown]
  - Proteinuria [Unknown]
  - Fatigue [Unknown]
  - Therapeutic product ineffective [Not Recovered/Not Resolved]
  - Pruritus [Unknown]
  - Dry skin [Unknown]
  - Pyrexia [Unknown]
  - Insomnia [Unknown]
  - Asthenia [Unknown]
  - Rehabilitation therapy [Unknown]
